APPROVED DRUG PRODUCT: ISOPTIN
Active Ingredient: VERAPAMIL HYDROCHLORIDE
Strength: 120MG **Federal Register determination that product was not discontinued or withdrawn for safety or effectiveness reasons**
Dosage Form/Route: TABLET;ORAL
Application: N018593 | Product #002
Applicant: MT ADAMS TECHNOLOGIES LLC
Approved: Mar 8, 1982 | RLD: Yes | RS: No | Type: DISCN